FAERS Safety Report 6771419-9 (Version None)
Quarter: 2010Q2

REPORT INFORMATION
  Report Type: 
  Country: None (occurrence: None)
  Receive Date: 20100616
  Receipt Date: 20100604
  Transmission Date: 20101027
  Serious: Yes (Other)
  Sender: FDA-Public Use
  Company Number: RU-JNJFOC-20100604551

PATIENT

DRUGS (2)
  1. MEBENDAZOLE [Suspect]
     Indication: HEPATIC ECHINOCOCCIASIS
     Route: 048
  2. ALL OTHER THERAPEUTIC PRODUCT [Suspect]
     Indication: DRUG USE FOR UNKNOWN INDICATION
     Route: 065

REACTIONS (2)
  - AGRANULOCYTOSIS [None]
  - THERAPEUTIC RESPONSE DECREASED [None]
